FAERS Safety Report 10706714 (Version 1)
Quarter: 2015Q1

REPORT INFORMATION
  Report Type: Spontaneous
  Country: US (occurrence: US)
  Receive Date: 20150113
  Receipt Date: 20150113
  Transmission Date: 20150721
  Serious: Yes (Hospitalization)
  Sender: FDA-Public Use
  Company Number: US-PFIZER INC-2015011313

PATIENT
  Age: 58 Year
  Sex: Female
  Weight: 81.18 kg

DRUGS (4)
  1. HTZ [Concomitant]
     Indication: HYPERTENSION
     Dosage: 25 MG, 1X/DAY
     Route: 048
  2. LISINOPRIL. [Concomitant]
     Active Substance: LISINOPRIL
     Indication: HYPERTENSION
     Dosage: 100 MG, 1X/DAY
     Route: 048
  3. METOPROLOL [Concomitant]
     Active Substance: METOPROLOL
     Indication: HYPERTENSION
     Dosage: 40 MG, 1X/DAY
     Route: 048
  4. LYRICA [Suspect]
     Active Substance: PREGABALIN
     Indication: FIBROMYALGIA
     Dosage: 150 MG CAPSULE, 4 CAPSULES A DAY
     Route: 048

REACTIONS (5)
  - Weight increased [Recovering/Resolving]
  - Meniscus injury [Recovered/Resolved]
  - Anxiety [Recovering/Resolving]
  - Nerve injury [Unknown]
  - Hyperphagia [Unknown]

NARRATIVE: CASE EVENT DATE: 2013
